FAERS Safety Report 7459689-5 (Version None)
Quarter: 2011Q2

REPORT INFORMATION
  Report Type: 
  Country: None (occurrence: None)
  Receive Date: 20110505
  Receipt Date: 20110422
  Transmission Date: 20111010
  Serious: Yes (Other)
  Sender: FDA-Public Use
  Company Number: US-ELI_LILLY_AND_COMPANY-US201101004976

PATIENT
  Sex: Male

DRUGS (5)
  1. CALCIUM [Concomitant]
     Dosage: 3 DF, QD
  2. FORTEO [Suspect]
     Indication: OSTEOPOROSIS
     Dosage: 20 UG, DAILY (1/D)
     Route: 065
  3. CALCIUM [Concomitant]
     Dosage: 2 DF, QD
  4. FORTEO [Suspect]
     Dosage: 20 UG, QD
  5. FORTEO [Suspect]
     Dosage: 20 UG, QD

REACTIONS (7)
  - URINE OUTPUT INCREASED [None]
  - SPINAL COLUMN STENOSIS [None]
  - NAUSEA [None]
  - CHROMATURIA [None]
  - ABNORMAL DREAMS [None]
  - PYREXIA [None]
  - BLOOD CALCIUM INCREASED [None]
